FAERS Safety Report 10480721 (Version 2)
Quarter: 2014Q4

REPORT INFORMATION
  Report Type: Spontaneous
  Country: JP (occurrence: JP)
  Receive Date: 20140929
  Receipt Date: 20141016
  Transmission Date: 20150528
  Serious: Yes (Other)
  Sender: FDA-Public Use
  Company Number: JP-AMGEN-JPNSP2014074188

PATIENT
  Age: 67 Year
  Sex: Female

DRUGS (2)
  1. METENOLONE ACETATE [Suspect]
     Active Substance: METHENOLONE ACETATE
     Indication: PANCYTOPENIA
     Dosage: UNK
     Route: 065
     Dates: start: 1997
  2. GRAN [Suspect]
     Active Substance: FILGRASTIM
     Indication: PANCYTOPENIA
     Dosage: UNK
     Route: 065
     Dates: start: 1997

REACTIONS (1)
  - Myelodysplastic syndrome [Unknown]
